FAERS Safety Report 14841249 (Version 1)
Quarter: 2018Q2

REPORT INFORMATION
  Report Type: Spontaneous
  Country: US (occurrence: US)
  Receive Date: 20180418
  Receipt Date: 20180418
  Transmission Date: 20180711
  Serious: Yes (Hospitalization)
  Sender: FDA-Public Use
  Company Number: None

PATIENT
  Age: 49 Year
  Sex: Male
  Weight: 56.5 kg

DRUGS (5)
  1. CLONIDINE 0.3MG TID [Concomitant]
  2. CINACALCET 30MG DAILY [Concomitant]
  3. CALCITRIOL 0.25MG DAILY [Concomitant]
  4. HYDRALAZINE 100MGTID [Concomitant]
  5. INFLECTRA [Suspect]
     Active Substance: INFLIXIMAB-DYYB
     Indication: CROHN^S DISEASE
     Dosage: ?          OTHER FREQUENCY:EVERY 2 WEEKS;?
     Route: 041
     Dates: start: 20180403, end: 20180417

REACTIONS (4)
  - Wheezing [None]
  - Dyspnoea [None]
  - Infusion related reaction [None]
  - Urticaria [None]

NARRATIVE: CASE EVENT DATE: 20180417
